FAERS Safety Report 7411758-1 (Version None)
Quarter: 2011Q2

REPORT INFORMATION
  Report Type: 
  Country: None (occurrence: None)
  Receive Date: 20110413
  Receipt Date: 20101217
  Transmission Date: 20111010
  Serious: Yes (Other)
  Sender: FDA-Public Use
  Company Number: US-BRISTOL-MYERS SQUIBB COMPANY-15449309

PATIENT
  Sex: Female

DRUGS (5)
  1. FLUOROURACIL [Suspect]
     Indication: COLORECTAL CANCER
  2. OXALIPLATIN [Suspect]
     Indication: COLORECTAL CANCER
  3. FOLINIC ACID [Suspect]
     Indication: COLORECTAL CANCER
  4. IRINOTECAN [Suspect]
     Indication: COLORECTAL CANCER
  5. ERBITUX [Suspect]
     Indication: COLORECTAL CANCER

REACTIONS (1)
  - NEOPLASM MALIGNANT [None]
